FAERS Safety Report 14018462 (Version 1)
Quarter: 2017Q3

REPORT INFORMATION
  Report Type: Spontaneous
  Country: US (occurrence: US)
  Receive Date: 20170928
  Receipt Date: 20170928
  Transmission Date: 20171128
  Serious: No
  Sender: FDA-Public Use
  Company Number: US-TEVA-798390ACC

PATIENT
  Sex: Male

DRUGS (7)
  1. METFORMIN [Concomitant]
     Active Substance: METFORMIN HYDROCHLORIDE
     Indication: DIABETES MELLITUS
     Dosage: 1000 MILLIGRAM DAILY; STARTED TAKING ABOUT 3-4 MONTHS AGO
     Route: 048
     Dates: start: 2017
  2. LISINOPRIL. [Concomitant]
     Active Substance: LISINOPRIL
  3. VITAMIN D [Concomitant]
     Active Substance: CHOLECALCIFEROL
     Indication: VITAMIN D DEFICIENCY
     Dosage: 6000 IU (INTERNATIONAL UNIT) DAILY;
     Route: 048
     Dates: start: 201706
  4. LISINOPRIL. [Concomitant]
     Active Substance: LISINOPRIL
     Indication: HYPERTENSION
     Dosage: 20 MILLIGRAM DAILY; STARTED TAKING ABOUT 3-4 MONTHS AGO
     Route: 048
     Dates: start: 2017
  5. GABAPENTIN. [Suspect]
     Active Substance: GABAPENTIN
     Indication: DIABETIC NEUROPATHY
     Dosage: 900 MILLIGRAM DAILY;
     Route: 048
     Dates: start: 2017, end: 201706
  6. BABY ASPIRIN [Concomitant]
     Active Substance: ASPIRIN
     Indication: CARDIOVASCULAR EVENT PROPHYLAXIS
     Dosage: 81 MILLIGRAM DAILY; STARTED TAKING ABOUT 3-4 MONTHS AGO
     Route: 048
     Dates: start: 2017
  7. GABAPENTIN. [Suspect]
     Active Substance: GABAPENTIN
     Dosage: 1800 MILLIGRAM DAILY;
     Route: 048

REACTIONS (1)
  - Drug ineffective [Unknown]

NARRATIVE: CASE EVENT DATE: 2017
